FAERS Safety Report 6071520-1 (Version None)
Quarter: 2009Q1

REPORT INFORMATION
  Report Type: 
  Country: None (occurrence: None)
  Receive Date: 20090206
  Receipt Date: 20090206
  Transmission Date: 20090719
  Serious: No
  Sender: FDA-Public Use
  Company Number: None

PATIENT
  Age: 18 Year
  Sex: Female

DRUGS (8)
  1. SOLODYN [Suspect]
     Dates: start: 20050101, end: 20070817
  2. PULMICORT-100 [Concomitant]
  3. NASACORT [Concomitant]
  4. SINGULAIR [Concomitant]
  5. AMOXICILLIN [Concomitant]
  6. VISTARIL [Concomitant]
  7. VICODIN [Concomitant]
  8. ALDACTONE [Concomitant]

REACTIONS (8)
  - ALANINE AMINOTRANSFERASE INCREASED [None]
  - ANTINUCLEAR ANTIBODY POSITIVE [None]
  - ASPARTATE AMINOTRANSFERASE INCREASED [None]
  - BLOOD ALKALINE PHOSPHATASE INCREASED [None]
  - CHOLANGITIS SCLEROSING [None]
  - HYPERGAMMAGLOBULINAEMIA [None]
  - LIVER INJURY [None]
  - PROTEIN TOTAL INCREASED [None]
